FAERS Safety Report 21493166 (Version 1)
Quarter: 2022Q4

REPORT INFORMATION
  Report Type: Spontaneous
  Country: US (occurrence: None)
  Receive Date: 20221020
  Receipt Date: 20221020
  Transmission Date: 20230113
  Serious: No
  Sender: FDA-Public Use
  Company Number: None

PATIENT
  Age: 75 Year
  Sex: Female

DRUGS (2)
  1. AMBRISENTAN [Suspect]
     Active Substance: AMBRISENTAN
     Indication: Pulmonary hypertension
     Dosage: FREQUENCY : DAILY;?
     Route: 048
     Dates: start: 20160713
  2. TADALAFIL [Suspect]
     Active Substance: TADALAFIL

REACTIONS (6)
  - Respiratory symptom [None]
  - Nasal congestion [None]
  - Upper-airway cough syndrome [None]
  - Cough [None]
  - Lacrimation increased [None]
  - Respiratory syncytial virus infection [None]

NARRATIVE: CASE EVENT DATE: 20221011
